FAERS Safety Report 24234887 (Version 1)
Quarter: 2024Q3

REPORT INFORMATION
  Report Type: Spontaneous
  Country: US (occurrence: US)
  Receive Date: 20240821
  Receipt Date: 20240821
  Transmission Date: 20241016
  Serious: Yes (Hospitalization, Other)
  Sender: BRISTOL MYERS SQUIBB
  Company Number: US-BRISTOL-MYERS SQUIBB COMPANY-2024-128620

PATIENT
  Age: 68 Year
  Sex: Female
  Weight: 78.9 kg

DRUGS (15)
  1. REVLIMID [Suspect]
     Active Substance: LENALIDOMIDE
     Indication: Product used for unknown indication
     Route: 048
     Dates: start: 20240403, end: 20240807
  2. ROPINIROLE [Concomitant]
     Active Substance: ROPINIROLE
  3. ALBUTEROL [Concomitant]
     Active Substance: ALBUTEROL
  4. ALENDRONATE [Concomitant]
     Active Substance: ALENDRONATE SODIUM
  5. VITAMIN B COMPLEX WITH C [Concomitant]
     Active Substance: ASCORBIC ACID\CALCIUM PANTOTHENATE\CYANOCOBALAMIN\NIACINAMIDE\PYRIDOXINE HYDROCHLORIDE\RIBOFLAVIN\TH
  6. CALCIUM [Concomitant]
     Active Substance: CALCIUM
  7. BIOTIN [Concomitant]
     Active Substance: BIOTIN
  8. JARDIANCE [Concomitant]
     Active Substance: EMPAGLIFLOZIN
  9. LISINOPRIL [Concomitant]
     Active Substance: LISINOPRIL
  10. NEXIUM I.V. [Concomitant]
     Active Substance: ESOMEPRAZOLE SODIUM
  11. MECLIZINE [Concomitant]
     Active Substance: MECLIZINE HYDROCHLORIDE
  12. MELATONIN [Concomitant]
     Active Substance: MELATONIN
  13. METOPROLOL [Concomitant]
     Active Substance: METOPROLOL
  14. ACYCLOVIR [Concomitant]
     Active Substance: ACYCLOVIR
  15. TORSEMIDE [Concomitant]
     Active Substance: TORSEMIDE

REACTIONS (2)
  - Myocardial infarction [Unknown]
  - Off label use [Unknown]

NARRATIVE: CASE EVENT DATE: 20240403
